FAERS Safety Report 15507083 (Version 4)
Quarter: 2019Q2

REPORT INFORMATION
  Report Type: Spontaneous
  Country: PL (occurrence: PL)
  Receive Date: 20181016
  Receipt Date: 20190531
  Transmission Date: 20190711
  Serious: Yes (Hospitalization)
  Sender: FDA-Public Use
  Company Number: PL-MYLANLABS-2018M1077089

PATIENT
  Age: 68 Year
  Sex: Female

DRUGS (21)
  1. ASA [Suspect]
     Active Substance: ASPIRIN
     Indication: BACK PAIN
     Dosage: 75 MILLIGRAM, QD
     Route: 065
  2. RAMIPRIL. [Suspect]
     Active Substance: RAMIPRIL
     Dosage: 5 MILLIGRAM, BID(5 MG, 2X/DAY(IN THE MORNING AND IN THE EVENING))
     Route: 065
  3. KETOPROFEN. [Suspect]
     Active Substance: KETOPROFEN
     Indication: BACK PAIN
     Dosage: 100 MG, BID FOR A WEEK
     Route: 065
  4. CARVEDILOL. [Suspect]
     Active Substance: CARVEDILOL
     Indication: PRODUCT USED FOR UNKNOWN INDICATION
     Dosage: 50 MILLIGRAM, QD (25 MG, 2X PER DAY)
     Route: 065
  5. FUROSEMIDE. [Suspect]
     Active Substance: FUROSEMIDE
     Indication: PRODUCT USED FOR UNKNOWN INDICATION
     Dosage: 40 MILLIGRAM
     Route: 042
  6. FUROSEMIDE. [Suspect]
     Active Substance: FUROSEMIDE
     Dosage: 20 MILLIGRAM, AN AMPOULE
     Route: 042
  7. ATORVASTATIN [Concomitant]
     Active Substance: ATORVASTATIN
     Indication: PRODUCT USED FOR UNKNOWN INDICATION
     Dosage: 80 MILLIGRAM, QD
  8. MORPHINE [Concomitant]
     Active Substance: MORPHINE
     Indication: PRODUCT USED FOR UNKNOWN INDICATION
     Dosage: 2 MILLIGRAM
  9. TORASEMIDE [Suspect]
     Active Substance: TORSEMIDE
     Indication: PRODUCT USED FOR UNKNOWN INDICATION
     Dosage: 10 MILLIGRAM, BID(10 MG, 2X/DAY)
     Route: 048
  10. GLYCERYL TRINITRATE [Concomitant]
     Active Substance: NITROGLYCERIN
     Indication: PRODUCT USED FOR UNKNOWN INDICATION
     Dosage: UNK
  11. AMOXICILLIN SODIUM AND CLAVULANATE POTASSIUM [Suspect]
     Active Substance: AMOXICILLIN\CLAVULANATE POTASSIUM
     Indication: PRODUCT USED FOR UNKNOWN INDICATION
     Dosage: UNK
     Route: 042
  12. ENALAPRIL [Suspect]
     Active Substance: ENALAPRIL
     Indication: PRODUCT USED FOR UNKNOWN INDICATION
     Dosage: 20 MILLIGRAM, QD(10 MG, 2X/DAY)
     Route: 065
  13. METOPROLOL                         /00376902/ [Concomitant]
     Active Substance: METOPROLOL TARTRATE
     Dosage: 100 MG, 1X/DAY(IN THE MORNING))
     Route: 048
  14. GLYCERYL TRINITRATE [Concomitant]
     Active Substance: NITROGLYCERIN
     Dosage: NITROGLYCERIN INFUSION OF 100 ?G/MIN
  15. RAMIPRIL. [Suspect]
     Active Substance: RAMIPRIL
     Indication: PRODUCT USED FOR UNKNOWN INDICATION
     Dosage: 2.5 MILLIGRAM, QD(2.5 MG, 1X/DAY)
     Route: 065
  16. AMOXICILLIN SODIUM W/CLAVULANIC ACID [Concomitant]
     Active Substance: AMOXICILLIN\CLAVULANATE POTASSIUM
     Indication: PRODUCT USED FOR UNKNOWN INDICATION
     Dosage: 1.2 G, Q8H
     Route: 042
  17. METOPROLOL                         /00376902/ [Concomitant]
     Active Substance: METOPROLOL TARTRATE
     Dosage: 25 MILLIGRAM
     Route: 048
  18. EPLERENON GENERIC [Concomitant]
     Indication: PRODUCT USED FOR UNKNOWN INDICATION
     Dosage: 25 MG, QD
  19. KETOPROFEN. [Suspect]
     Active Substance: KETOPROFEN
     Indication: PAIN
     Dosage: 200 MILLIGRAM, QD(100 MG, BID)
     Route: 065
  20. METOPROLOL                         /00376902/ [Concomitant]
     Active Substance: METOPROLOL TARTRATE
     Indication: PRODUCT USED FOR UNKNOWN INDICATION
     Dosage: 25 MG, 3X/DAY
     Route: 048
  21. CLOPIDOGREL [Concomitant]
     Active Substance: CLOPIDOGREL BISULFATE
     Indication: PRODUCT USED FOR UNKNOWN INDICATION
     Dosage: 75 MG, 1X/DAY (IN THE MORNING)

REACTIONS (4)
  - Drug ineffective [Recovered/Resolved]
  - Respiratory tract infection [Recovered/Resolved]
  - Pulmonary oedema [Recovered/Resolved]
  - Therapeutic response decreased [Unknown]
